FAERS Safety Report 4884271-3 (Version None)
Quarter: 2005Q4

REPORT INFORMATION
  Report Type: 
  Country: None (occurrence: None)
  Receive Date: 20051201
  Receipt Date: 20050910
  Transmission Date: 20060501
  Serious: No
  Sender: FDA-Public Use
  Company Number: 2005PV002015

PATIENT
  Age: 43 Year
  Sex: Female
  Weight: 120.6568 kg

DRUGS (3)
  1. BYETTA [Suspect]
     Indication: DIABETES MELLITUS NON-INSULIN-DEPENDENT
     Dosage: 5 MCG, BID, SC
     Route: 058
     Dates: start: 20050801, end: 20050909
  2. TYLENOL [Suspect]
     Indication: SINUSITIS
     Dates: start: 20050906, end: 20050908
  3. SYNTHROID [Concomitant]

REACTIONS (4)
  - NAUSEA [None]
  - PALPITATIONS [None]
  - SINUSITIS [None]
  - WEIGHT DECREASED [None]
